FAERS Safety Report 12763647 (Version 1)
Quarter: 2016Q3

REPORT INFORMATION
  Report Type: Spontaneous
  Country: JP (occurrence: JP)
  Receive Date: 20160920
  Receipt Date: 20160920
  Transmission Date: 20161109
  Serious: Yes (Death, Other)
  Sender: FDA-Public Use
  Company Number: JP-OTSUKA-02100-JPN-00-0033

PATIENT
  Age: 72 Year
  Sex: Female
  Weight: 38 kg

DRUGS (12)
  1. BUFFERIN [Concomitant]
     Active Substance: ASPIRIN
     Indication: ANTIPLATELET THERAPY
     Dosage: UNK, QD
     Route: 048
     Dates: start: 19980303, end: 20000502
  2. JUVELA NICOTINATE [Concomitant]
     Active Substance: TOCOPHERYL NICOTINATE, D-.ALPHA.
     Indication: VASODILATATION
     Dosage: UNK, TID
     Route: 048
     Dates: start: 19980806, end: 20000428
  3. NITRODERM [Concomitant]
     Active Substance: NITROGLYCERIN
     Indication: MYOCARDIAL INFARCTION
     Dosage: UNK, QD
     Route: 058
     Dates: start: 20000128, end: 20000428
  4. BUP-4 [Concomitant]
     Active Substance: PROPIVERINE
     Indication: URINARY INCONTINENCE
     Route: 048
     Dates: end: 20000428
  5. NITOROL - SLOW RELEASE [Concomitant]
     Indication: MYOCARDIAL ISCHAEMIA
     Dosage: UNK, BID
     Route: 048
     Dates: end: 20000428
  6. SERENACE [Concomitant]
     Active Substance: HALOPERIDOL
     Indication: SCHIZOPHRENIA
     Dosage: UNK, BID
     Route: 048
     Dates: start: 19980827, end: 20000502
  7. CEREKINON [Concomitant]
     Active Substance: TRIMEBUTINE
     Indication: CHRONIC GASTRITIS
     Dosage: 200 MG, TID
     Route: 048
     Dates: start: 19980207, end: 20000428
  8. PLETAAL TABLETS 100MG [Suspect]
     Active Substance: CILOSTAZOL
     Indication: DISSEMINATED INTRAVASCULAR COAGULATION
     Dosage: 100 MG, QD
     Route: 048
     Dates: start: 20000408, end: 20000414
  9. MEVALOTIN [Concomitant]
     Active Substance: PRAVASTATIN SODIUM
     Indication: HYPERLIPIDAEMIA
     Dosage: UNK, QD
     Route: 048
     Dates: end: 20000428
  10. ROCORNAL [Concomitant]
     Indication: MYOCARDIAL ISCHAEMIA
     Dosage: UNK, TID
     Route: 048
     Dates: start: 19990802, end: 20000428
  11. PLETAAL TABLETS 100MG [Suspect]
     Active Substance: CILOSTAZOL
     Dosage: 100 MG, BID
     Route: 048
     Dates: start: 20000415, end: 20000428
  12. TSUMURA 25 [Concomitant]
     Indication: ANTIPLATELET THERAPY
     Dosage: 1 DF, TID
     Route: 048
     Dates: start: 19971209, end: 20000428

REACTIONS (6)
  - Renal failure [Unknown]
  - Vomiting [Unknown]
  - Cardiac failure acute [Fatal]
  - Thrombocytopenia [Unknown]
  - Myocardial infarction [Fatal]
  - Face oedema [Unknown]

NARRATIVE: CASE EVENT DATE: 20000426
